FAERS Safety Report 7606580-7 (Version None)
Quarter: 2011Q3

REPORT INFORMATION
  Report Type: 
  Country: None (occurrence: None)
  Receive Date: 20110705
  Receipt Date: 20110627
  Transmission Date: 20111222
  Serious: No
  Sender: FDA-Public Use
  Company Number: 2011-00795

PATIENT
  Age: 72 Year
  Sex: Female
  Weight: 56.6996 kg

DRUGS (2)
  1. ACYCLOVIR [Concomitant]
  2. ZICAM COLD REMEDY PLUS LIQUI-LOZ [Suspect]
     Dates: start: 20110609, end: 20110616

REACTIONS (2)
  - ANOSMIA [None]
  - AGEUSIA [None]
